FAERS Safety Report 4325691-5 (Version None)
Quarter: 2004Q1

REPORT INFORMATION
  Report Type: 
  Country: None (occurrence: None)
  Receive Date: 20040324
  Receipt Date: 20040316
  Transmission Date: 20041129
  Serious: Yes (Hospitalization)
  Sender: FDA-Public Use
  Company Number: J081-002-001605

PATIENT
  Age: 75 Year
  Sex: Male

DRUGS (7)
  1. ARICEPT [Suspect]
     Dosage: ORAL
     Route: 048
     Dates: start: 20030101, end: 20040301
  2. PAXIL [Suspect]
     Dosage: ORAL
     Route: 048
     Dates: start: 20030101
  3. BUFFERIN [Concomitant]
  4. SERMION (NICERGOLINE) [Concomitant]
  5. DIGOXIN [Concomitant]
  6. METHYCOBAL (MECOBALAMIN) [Concomitant]
  7. ADETPHOS (ADENOSINE TRIPHOSPHATE, DISODIUM SALT) [Concomitant]

REACTIONS (3)
  - DYSPNOEA [None]
  - INTERSTITIAL LUNG DISEASE [None]
  - MYCOPLASMA INFECTION [None]
